FAERS Safety Report 16307231 (Version 1)
Quarter: 2019Q2

REPORT INFORMATION
  Report Type: Spontaneous
  Country: US (occurrence: US)
  Receive Date: 20190514
  Receipt Date: 20190514
  Transmission Date: 20190711
  Serious: Yes (Other)
  Sender: FDA-Public Use
  Company Number: US-HORMOSAN PHARMA GMBH-2019-02839

PATIENT
  Sex: Female

DRUGS (1)
  1. QUETIAPINE TABLETS USP, 400 MG [Suspect]
     Active Substance: QUETIAPINE
     Indication: BIPOLAR DISORDER
     Dosage: HALF OF THE 400 MG TABLET ONCE A DAY
     Route: 065
     Dates: start: 201902

REACTIONS (4)
  - Product prescribing error [Unknown]
  - Bipolar disorder [Unknown]
  - Drug ineffective [Unknown]
  - Wrong technique in product usage process [Unknown]
